FAERS Safety Report 19864468 (Version 1)
Quarter: 2021Q3

REPORT INFORMATION
  Report Type: Spontaneous
  Country: IN (occurrence: IN)
  Receive Date: 20210921
  Receipt Date: 20210921
  Transmission Date: 20211014
  Serious: Yes (Death, Hospitalization)
  Sender: FDA-Public Use
  Company Number: IN-PFIZER INC-2020241019

PATIENT
  Age: 51 Year
  Sex: Female
  Weight: 69.3 kg

DRUGS (4)
  1. CRIZALK [Suspect]
     Active Substance: CRIZOTINIB
     Indication: NEOPLASM MALIGNANT
     Dosage: 250 MG, 2X/DAY
     Route: 048
     Dates: start: 20191022, end: 20210417
  2. SHELCAL [Concomitant]
     Active Substance: CALCIUM CARBONATE\CHOLECALCIFEROL
     Dosage: 50 MG, 1X/DAY
  3. XARELTO [Concomitant]
     Active Substance: RIVAROXABAN
     Dosage: 10 MG, 1X/DAY
  4. ASTRAWIN [Concomitant]
     Dosage: UNK, 2X/DAY

REACTIONS (3)
  - Myocardial infarction [Fatal]
  - Alopecia [Unknown]
  - Joint swelling [Unknown]
